FAERS Safety Report 9029814 (Version 1)
Quarter: 2013Q1

REPORT INFORMATION
  Report Type: Spontaneous
  Country: US (occurrence: US)
  Receive Date: 20130124
  Receipt Date: 20130124
  Transmission Date: 20140127
  Serious: Yes (Other)
  Sender: FDA-Public Use
  Company Number: CHPA2013US001308

PATIENT
  Age: 71 Year
  Sex: Female

DRUGS (6)
  1. PREVACID 24HR 15MG [Suspect]
     Indication: GASTROOESOPHAGEAL REFLUX DISEASE
     Dosage: 15 MG, QD
     Route: 048
     Dates: start: 20130118
  2. PREVACID 24HR 15MG [Suspect]
     Dosage: 15 MG, QD
     Route: 048
     Dates: start: 20130116, end: 20130116
  3. PREVACID 24HR 15MG [Suspect]
     Dosage: 15 MG, QD
     Route: 048
     Dates: start: 2012
  4. CIPROFLOXACIN HYDROCHLORIDE [Suspect]
     Indication: CLOSTRIDIAL INFECTION
     Dosage: UNK, UNK
  5. ANTIDEPRESSANTS [Suspect]
     Indication: NERVOUSNESS
     Dosage: UNK, ONCE/SINGLE
  6. ESTRACE [Concomitant]

REACTIONS (11)
  - Clostridium difficile infection [Recovered/Resolved]
  - Post procedural complication [Recovered/Resolved]
  - Disease recurrence [Recovered/Resolved]
  - Gastrointestinal disorder [Recovered/Resolved]
  - Malaise [Recovered/Resolved]
  - Abdominal discomfort [Not Recovered/Not Resolved]
  - Nausea [Not Recovered/Not Resolved]
  - Off label use [Unknown]
  - Therapeutic response unexpected [Unknown]
  - Treatment noncompliance [Unknown]
  - Expired drug administered [Unknown]
